FAERS Safety Report 13176793 (Version 1)
Quarter: 2017Q1

REPORT INFORMATION
  Report Type: Spontaneous
  Country: SE (occurrence: SE)
  Receive Date: 20170201
  Receipt Date: 20170201
  Transmission Date: 20170428
  Serious: Yes (Death)
  Sender: FDA-Public Use
  Company Number: SE-KADMON PHARMACEUTICALS, LLC-KAD201701-000283

PATIENT
  Age: 67 Year
  Sex: Male

DRUGS (4)
  1. HARVONI [Suspect]
     Active Substance: LEDIPASVIR\SOFOSBUVIR
     Indication: HEPATITIS C
     Dosage: FILM-COATED TABLET; FORM STRENGTH 90 MG/400 MG; 1 TABLET, 1 IN 1 DAY
     Route: 048
     Dates: start: 20160415, end: 20160929
  2. OLYSIO [Suspect]
     Active Substance: SIMEPREVIR
     Indication: HEPATITIS C
     Route: 048
     Dates: start: 20150108, end: 20150428
  3. RIBAVIRIN. [Suspect]
     Active Substance: RIBAVIRIN
     Indication: HEPATITIS C
     Dosage: 800 MG, FILM-COATED TABLET
     Route: 048
     Dates: start: 20160415, end: 20160929
  4. SOVALDI [Suspect]
     Active Substance: SOFOSBUVIR
     Indication: HEPATITIS C
     Route: 048
     Dates: start: 20150108, end: 20150428

REACTIONS (1)
  - Hepatocellular carcinoma [Fatal]

NARRATIVE: CASE EVENT DATE: 201603
